FAERS Safety Report 18267556 (Version 9)
Quarter: 2022Q1

REPORT INFORMATION
  Report Type: Report from Study
  Country: CN (occurrence: CN)
  Receive Date: 20200915
  Receipt Date: 20220210
  Transmission Date: 20220423
  Serious: Yes (Death, Other)
  Sender: FDA-Public Use
  Company Number: CN-ASTELLAS-2020US031863

PATIENT
  Age: 81 Year
  Sex: Male
  Weight: 60 kg

DRUGS (5)
  1. ENZALUTAMIDE [Suspect]
     Active Substance: ENZALUTAMIDE
     Indication: Prostate cancer
     Dosage: UNK UNK, UNKNOWN FREQ.
     Route: 048
     Dates: start: 20200717, end: 20200908
  2. TAMSULOSIN [Concomitant]
     Active Substance: TAMSULOSIN
     Indication: Urinary tract obstruction
     Dosage: 0.2 G, ONCE DAILY
     Route: 048
     Dates: start: 20200624, end: 20200929
  3. GOSERELIN ACETATE [Concomitant]
     Active Substance: GOSERELIN ACETATE
     Indication: Prostate cancer
     Dosage: 10.8 MG, ONCE
     Route: 058
     Dates: start: 20200811, end: 20200811
  4. Compound Eosinophil Lactobacillus [Concomitant]
     Indication: Increased appetite
     Dosage: 0.5 G, ONCE DAILY
     Route: 048
     Dates: start: 20200819, end: 20200826
  5. Oryz-Aspergillus enzyme and pancreatin [Concomitant]
     Indication: Increased appetite
     Dosage: 244 MG (220MG PLUS 24MG), ONCE DAILY
     Route: 048
     Dates: start: 20200819, end: 20200826

REACTIONS (1)
  - Acute on chronic liver failure [Fatal]

NARRATIVE: CASE EVENT DATE: 20200908
